FAERS Safety Report 22126334 (Version 2)
Quarter: 2023Q2

REPORT INFORMATION
  Report Type: Spontaneous
  Country: US (occurrence: US)
  Receive Date: 20230322
  Receipt Date: 20230622
  Transmission Date: 20230722
  Serious: No
  Sender: FDA-Public Use
  Company Number: US-BRISTOL-MYERS SQUIBB COMPANY-2023-041042

PATIENT
  Age: 76 Year
  Sex: Female
  Weight: 50.8 kg

DRUGS (14)
  1. OPDIVO [Suspect]
     Active Substance: NIVOLUMAB
     Indication: Lung neoplasm malignant
     Route: 042
     Dates: start: 2023
  2. OPDIVO [Suspect]
     Active Substance: NIVOLUMAB
     Indication: Brain neoplasm malignant
  3. OPDIVO [Suspect]
     Active Substance: NIVOLUMAB
     Indication: Neoplasm
  4. YERVOY [Suspect]
     Active Substance: IPILIMUMAB
     Indication: Neoplasm
     Route: 042
  5. YERVOY [Suspect]
     Active Substance: IPILIMUMAB
     Indication: Brain neoplasm malignant
  6. YERVOY [Suspect]
     Active Substance: IPILIMUMAB
     Indication: Lung neoplasm malignant
  7. CELEBREX [Concomitant]
     Active Substance: CELECOXIB
     Indication: Product used for unknown indication
  8. POTASSIUM CHLORIDE [Concomitant]
     Active Substance: POTASSIUM CHLORIDE
     Indication: Product used for unknown indication
  9. PANTOPRAZOLE [Concomitant]
     Active Substance: PANTOPRAZOLE
     Indication: Gastric disorder
  10. GLICLAZIDE [Concomitant]
     Active Substance: GLICLAZIDE
     Indication: Product used for unknown indication
  11. PREDNISONE [Concomitant]
     Active Substance: PREDNISONE
     Indication: Product used for unknown indication
  12. ATORVASTATIN [Concomitant]
     Active Substance: ATORVASTATIN
     Indication: Product used for unknown indication
  13. LOSARTAN [Concomitant]
     Active Substance: LOSARTAN
     Indication: Product used for unknown indication
  14. FUROSEMIDE [Concomitant]
     Active Substance: FUROSEMIDE
     Indication: Product used for unknown indication

REACTIONS (4)
  - Arthralgia [Not Recovered/Not Resolved]
  - Pain in extremity [Unknown]
  - Peripheral swelling [Unknown]
  - Arthritis [Recovering/Resolving]

NARRATIVE: CASE EVENT DATE: 20230101
